FAERS Safety Report 24575680 (Version 1)
Quarter: 2024Q4

REPORT INFORMATION
  Report Type: Spontaneous
  Country: US (occurrence: None)
  Receive Date: 20241101
  Receipt Date: 20241101
  Transmission Date: 20250115
  Serious: Yes (Disabling, Other)
  Sender: Public
  Company Number: None

PATIENT
  Age: 31 Year
  Sex: Female

DRUGS (1)
  1. CIPROFLOXACIN HYDROCHLORIDE [Suspect]
     Active Substance: CIPROFLOXACIN HYDROCHLORIDE
     Indication: Urinary tract infection
     Dosage: OTHER QUANTITY : 1 TABLET(S);?FREQUENCY : TWICE A DAY;?
     Route: 048
     Dates: start: 20241025, end: 20241028

REACTIONS (6)
  - Anxiety [None]
  - Palpitations [None]
  - Diarrhoea [None]
  - Arthralgia [None]
  - Neuropathy peripheral [None]
  - Product prescribing issue [None]

NARRATIVE: CASE EVENT DATE: 20241027
